FAERS Safety Report 10546026 (Version 1)
Quarter: 2014Q4

REPORT INFORMATION
  Report Type: Spontaneous
  Country: JP (occurrence: JP)
  Receive Date: 20141027
  Receipt Date: 20141027
  Transmission Date: 20150529
  Serious: Yes (Death)
  Sender: FDA-Public Use
  Company Number: JP-009507513-1410JPN011134

PATIENT
  Age: 5 Year
  Sex: Male

DRUGS (2)
  1. TEMODAL [Suspect]
     Active Substance: TEMOZOLOMIDE
     Dosage: 130 MG, UNK
     Route: 048
     Dates: start: 20141020
  2. TEMODAL [Suspect]
     Active Substance: TEMOZOLOMIDE
     Dosage: 120 MG, UNK
     Route: 048
     Dates: start: 201406, end: 201410

REACTIONS (3)
  - Disease progression [Fatal]
  - Drug administered to patient of inappropriate age [Unknown]
  - Wrong technique in drug usage process [Unknown]

NARRATIVE: CASE EVENT DATE: 201406
